FAERS Safety Report 15481668 (Version 1)
Quarter: 2018Q4

REPORT INFORMATION
  Report Type: Spontaneous
  Country: US (occurrence: US)
  Receive Date: 20181003
  Receipt Date: 20181003
  Transmission Date: 20190205
  Serious: Yes (Other)
  Sender: FDA-Public Use
  Company Number: None

PATIENT

DRUGS (5)
  1. MULTI VIT SWANSENS [Concomitant]
  2. VITAMINS [Concomitant]
     Active Substance: VITAMINS
  3. SULFAMETHOXAZOLE/TRIMETHOPRIM DS [Suspect]
     Active Substance: SULFAMETHOXAZOLE\TRIMETHOPRIM
     Indication: CYSTITIS
     Dosage: ?          QUANTITY:1 DF DOSAGE FORM;?
     Route: 048
     Dates: start: 20180917
  4. MAGNESIUM CHELATED HIGH ABSORBSION DRS BEST [Concomitant]
  5. HAIR SKIN NAILS BIOTIN NAT. BOUNTY [Concomitant]

REACTIONS (6)
  - Asthenia [None]
  - Neuropathy peripheral [None]
  - Dizziness [None]
  - Peripheral swelling [None]
  - Vomiting [None]
  - Stress [None]

NARRATIVE: CASE EVENT DATE: 20180912
